FAERS Safety Report 9181292 (Version 1)
Quarter: 2013Q1

REPORT INFORMATION
  Report Type: Spontaneous
  Country: US (occurrence: US)
  Receive Date: 20130322
  Receipt Date: 20130322
  Transmission Date: 20140127
  Serious: No
  Sender: FDA-Public Use
  Company Number: US-MYLANLABS-2013S1002415

PATIENT
  Age: 74 Year
  Sex: Female
  Weight: 74.84 kg

DRUGS (3)
  1. EMSAM [Suspect]
     Indication: MAJOR DEPRESSION
     Route: 062
     Dates: start: 201210
  2. ALBUTEROL [Concomitant]
     Route: 055
  3. INDERAL LA [Concomitant]

REACTIONS (3)
  - Application site erythema [Not Recovered/Not Resolved]
  - Application site irritation [Not Recovered/Not Resolved]
  - Rash [Not Recovered/Not Resolved]
